FAERS Safety Report 24449462 (Version 1)
Quarter: 2024Q4

REPORT INFORMATION
  Report Type: Spontaneous
  Country: US (occurrence: US)
  Receive Date: 20241017
  Receipt Date: 20241017
  Transmission Date: 20250114
  Serious: No
  Sender: ROCHE
  Company Number: US-ROCHE-10000101136

PATIENT
  Age: 88 Year
  Sex: Female

DRUGS (3)
  1. LUCENTIS [Suspect]
     Active Substance: RANIBIZUMAB
     Indication: Age-related macular degeneration
     Route: 065
     Dates: start: 2022
  2. LUCENTIS [Suspect]
     Active Substance: RANIBIZUMAB
     Indication: Venous occlusion
  3. ATIVAN [Concomitant]
     Active Substance: LORAZEPAM

REACTIONS (14)
  - Visual impairment [Not Recovered/Not Resolved]
  - Diplopia [Not Recovered/Not Resolved]
  - Drug hypersensitivity [Not Recovered/Not Resolved]
  - Eye pain [Not Recovered/Not Resolved]
  - Pruritus [Not Recovered/Not Resolved]
  - Mass [Not Recovered/Not Resolved]
  - Headache [Not Recovered/Not Resolved]
  - Foreign body sensation in eyes [Not Recovered/Not Resolved]
  - Retinal oedema [Unknown]
  - Rhinitis [Unknown]
  - Pneumonia [Unknown]
  - Pharyngitis [Unknown]
  - Fatigue [Unknown]
  - Off label use [Unknown]

NARRATIVE: CASE EVENT DATE: 20240101
